FAERS Safety Report 6532359-3 (Version None)
Quarter: 2010Q1

REPORT INFORMATION
  Report Type: 
  Country: None (occurrence: None)
  Receive Date: 20100108
  Receipt Date: 20091230
  Transmission Date: 20100710
  Serious: Yes (Hospitalization)
  Sender: FDA-Public Use
  Company Number: PL-PFIZER INC-2009316117

PATIENT
  Age: 52 Year
  Sex: Female

DRUGS (2)
  1. SPIRONOLACTONE [Suspect]
  2. AMLODIPINE BESYLATE [Suspect]

REACTIONS (1)
  - ACUTE GENERALISED EXANTHEMATOUS PUSTULOSIS [None]
